FAERS Safety Report 12543853 (Version 1)
Quarter: 2016Q3

REPORT INFORMATION
  Report Type: Spontaneous
  Country: US (occurrence: None)
  Receive Date: 20160708
  Receipt Date: 20160708
  Transmission Date: 20161109
  Serious: No
  Sender: FDA-Public Use
  Company Number: None

PATIENT
  Age: 28 Year
  Sex: Female
  Weight: 69.4 kg

DRUGS (6)
  1. SPIRONOLACTONE. [Concomitant]
     Active Substance: SPIRONOLACTONE
  2. OLANZAPINE 7.5MG TABLET, 7.5 MG APOTEX CORP [Suspect]
     Active Substance: OLANZAPINE
     Indication: SCHIZOPHRENIA
     Route: 048
  3. OLANZAPINE 7.5MG TABLET, 7.5 MG APOTEX CORP [Suspect]
     Active Substance: OLANZAPINE
     Indication: PARANOIA
     Route: 048
  4. FLUOXETINE [Concomitant]
     Active Substance: FLUOXETINE HYDROCHLORIDE
  5. MEDROXYPROGESTERONE [Concomitant]
     Active Substance: MEDROXYPROGESTERONE
  6. ESTRADIOL CYPIONATE [Concomitant]
     Active Substance: ESTRADIOL CYPIONATE

REACTIONS (3)
  - Insomnia [None]
  - Hallucination, auditory [None]
  - Paranoia [None]

NARRATIVE: CASE EVENT DATE: 20160615
